FAERS Safety Report 15333850 (Version 2)
Quarter: 2018Q4

REPORT INFORMATION
  Report Type: Spontaneous
  Country: US (occurrence: US)
  Receive Date: 20180830
  Receipt Date: 20181006
  Transmission Date: 20190204
  Serious: Yes (Death, Hospitalization)
  Sender: FDA-Public Use
  Company Number: US-JNJFOC-20180819264

PATIENT
  Age: 83 Year
  Sex: Male
  Weight: 77.11 kg

DRUGS (12)
  1. XARELTO [Suspect]
     Active Substance: RIVAROXABAN
     Indication: THROMBOSIS PROPHYLAXIS
     Route: 048
  2. XARELTO [Suspect]
     Active Substance: RIVAROXABAN
     Indication: THROMBOSIS PROPHYLAXIS
     Dosage: 15 MG AND 20 MG
     Route: 048
     Dates: end: 20150924
  3. XARELTO [Suspect]
     Active Substance: RIVAROXABAN
     Indication: ATRIAL FIBRILLATION
     Dosage: 15 MG AND 20 MG
     Route: 048
     Dates: end: 20150924
  4. XARELTO [Suspect]
     Active Substance: RIVAROXABAN
     Indication: CEREBROVASCULAR ACCIDENT PROPHYLAXIS
     Dosage: 15 MG AND 20 MG
     Route: 048
     Dates: end: 20150924
  5. XARELTO [Suspect]
     Active Substance: RIVAROXABAN
     Indication: HEADACHE
     Dosage: 15 MG AND 20 MG
     Route: 048
     Dates: end: 20150924
  6. XARELTO [Suspect]
     Active Substance: RIVAROXABAN
     Indication: ATRIAL FIBRILLATION
     Dosage: 15 MG AND 20 MG
     Route: 048
     Dates: start: 201311, end: 201508
  7. XARELTO [Suspect]
     Active Substance: RIVAROXABAN
     Indication: HEADACHE
     Dosage: 15 MG AND 20 MG
     Route: 048
     Dates: start: 201311, end: 201508
  8. XARELTO [Suspect]
     Active Substance: RIVAROXABAN
     Indication: CEREBROVASCULAR ACCIDENT PROPHYLAXIS
     Dosage: 15 MG AND 20 MG
     Route: 048
     Dates: start: 201311, end: 201508
  9. XARELTO [Suspect]
     Active Substance: RIVAROXABAN
     Indication: CEREBROVASCULAR ACCIDENT PROPHYLAXIS
     Route: 048
  10. XARELTO [Suspect]
     Active Substance: RIVAROXABAN
     Indication: ATRIAL FIBRILLATION
     Route: 048
  11. XARELTO [Suspect]
     Active Substance: RIVAROXABAN
     Indication: THROMBOSIS PROPHYLAXIS
     Dosage: 15 MG AND 20 MG
     Route: 048
     Dates: start: 201311, end: 201508
  12. XARELTO [Suspect]
     Active Substance: RIVAROXABAN
     Indication: HEADACHE
     Route: 048

REACTIONS (2)
  - Cerebral haemorrhage [Fatal]
  - Extra dose administered [Unknown]

NARRATIVE: CASE EVENT DATE: 201509
